FAERS Safety Report 17539023 (Version 2)
Quarter: 2021Q3

REPORT INFORMATION
  Report Type: Spontaneous
  Country: US (occurrence: US)
  Receive Date: 20200313
  Receipt Date: 20210924
  Transmission Date: 20211014
  Serious: Yes (Hospitalization, Other)
  Sender: FDA-Public Use
  Company Number: US-TEVA-2020-US-1199916

PATIENT
  Age: 73 Year
  Sex: Female

DRUGS (22)
  1. ROSUVASTATIN. [Concomitant]
     Active Substance: ROSUVASTATIN
     Indication: DYSLIPIDAEMIA
     Dosage: AT NIGHT
     Route: 048
  2. ESTRADIOL. [Concomitant]
     Active Substance: ESTRADIOL
     Dosage: 0.01 PERCENT (1 GM)
     Route: 067
  3. AMLODIPINE/VALSARTAN/HYDROCHLOROTHIAZIDE TEVA [Suspect]
     Active Substance: AMLODIPINE\HYDROCHLOROTHIAZIDE\VALSARTAN
     Dosage: 10/25/160 MG
     Route: 048
     Dates: start: 20150122, end: 20150623
  4. AMLODIPINE/VALSARTAN/HYDROCHLOROTHIAZIDE TEVA [Suspect]
     Active Substance: AMLODIPINE\HYDROCHLOROTHIAZIDE\VALSARTAN
     Dosage: 10/25/160 MG
     Route: 048
     Dates: start: 20170326, end: 20170526
  5. MAGNESIUM [Concomitant]
     Active Substance: MAGNESIUM
     Dosage: TAKE 500 MG
     Route: 048
  6. AMLODIPINE/VALSARTAN/HYDROCHLOROTHIAZIDE TEVA [Suspect]
     Active Substance: AMLODIPINE\HYDROCHLOROTHIAZIDE\VALSARTAN
     Indication: HYPERTENSION
     Dosage: 10/25/160 MG
     Route: 048
     Dates: start: 20141222, end: 20150121
  7. AMLODIPINE/VALSARTAN/HYDROCHLOROTHIAZIDE TORRENT [Suspect]
     Active Substance: AMLODIPINE\HYDROCHLOROTHIAZIDE\VALSARTAN
     Indication: HYPERTENSION
     Dosage: 10/160/25 MG
     Route: 048
     Dates: start: 2016
  8. OMEPRAZOLE. [Concomitant]
     Active Substance: OMEPRAZOLE
     Indication: DYSPEPSIA
  9. CARVEDILOL. [Concomitant]
     Active Substance: CARVEDILOL
     Indication: HYPERTENSION
     Dosage: IN EVENING
     Route: 048
  10. LEVAQUIN [Concomitant]
     Active Substance: LEVOFLOXACIN
     Route: 048
  11. CYCLOBENZAPRINE. [Concomitant]
     Active Substance: CYCLOBENZAPRINE
     Route: 048
  12. GABAPENTIN. [Concomitant]
     Active Substance: GABAPENTIN
     Indication: PAIN IN EXTREMITY
     Route: 048
  13. GLIPIZIDE. [Concomitant]
     Active Substance: GLIPIZIDE
     Indication: TYPE 2 DIABETES MELLITUS
     Dosage: EXTENDED?RELEASE TABLET 24 HOUR
     Route: 048
  14. AMOXICILLIN. [Concomitant]
     Active Substance: AMOXICILLIN
     Dosage: EVERY 12 HRS
     Route: 048
  15. ALLOPURINOL. [Concomitant]
     Active Substance: ALLOPURINOL
     Indication: GOUT
     Route: 048
     Dates: start: 2017
  16. DIFLUCAN [Concomitant]
     Active Substance: FLUCONAZOLE
     Route: 048
  17. AMLODIPINE/VALSARTAN/HYDROCHLOROTHIAZIDE TEVA [Suspect]
     Active Substance: AMLODIPINE\HYDROCHLOROTHIAZIDE\VALSARTAN
     Dosage: 10/25/160 MG
     Route: 048
     Dates: start: 20150624, end: 20160104
  18. AMLODIPINE/VALSARTAN/HYDROCHLOROTHIAZIDE SANDOZ [Suspect]
     Active Substance: AMLODIPINE\HYDROCHLOROTHIAZIDE\VALSARTAN
     Indication: HYPERTENSION
     Dosage: 10/160/25 MG
     Route: 048
     Dates: start: 2016
  19. PANTOPRAZOLE [Concomitant]
     Active Substance: PANTOPRAZOLE
     Indication: DYSPEPSIA
     Dosage: DELAYED RELEASE TABLET, IN THE MORNING 30 MINS BEFORE BREAKFAST
     Route: 048
  20. CINNAMON. [Concomitant]
     Active Substance: CINNAMON
     Route: 048
  21. TYLENOL [Concomitant]
     Active Substance: ACETAMINOPHEN
     Indication: PAIN
     Dates: start: 201801
  22. OLMESARTAN/AMLODIPINE/HCTZ [Concomitant]
     Active Substance: AMLODIPINE\HYDROCHLOROTHIAZIDE\OLMESARTAN
     Indication: HYPERTENSION
     Dosage: 40/10/25 MG

REACTIONS (6)
  - Oedema peripheral [Not Recovered/Not Resolved]
  - Pulmonary mass [Unknown]
  - Thyroid mass [Unknown]
  - Abdominal pain [Not Recovered/Not Resolved]
  - Pain in extremity [Not Recovered/Not Resolved]
  - Pancreatic carcinoma stage IV [Not Recovered/Not Resolved]

NARRATIVE: CASE EVENT DATE: 201806
